FAERS Safety Report 6802595-7 (Version None)
Quarter: 2010Q2

REPORT INFORMATION
  Report Type: 
  Country: None (occurrence: None)
  Receive Date: 20100628
  Receipt Date: 20100621
  Transmission Date: 20101027
  Serious: Yes (Other)
  Sender: FDA-Public Use
  Company Number: US-BAYER-201024756NA

PATIENT
  Age: 42 Year
  Sex: Female

DRUGS (15)
  1. BETASERON [Suspect]
     Indication: MULTIPLE SCLEROSIS
     Dosage: TOTAL DAILY DOSE: 2 MIU
     Route: 058
     Dates: start: 20100604
  2. VICODIN [Concomitant]
  3. VALIUM [Concomitant]
  4. NEURONTIN [Concomitant]
     Indication: MUSCLE SPASMS
  5. ALLEGRA [Concomitant]
     Indication: MULTIPLE ALLERGIES
  6. XANAX [Concomitant]
  7. OXYBUTYNIN CHLORIDE [Concomitant]
  8. PULMICORT [Concomitant]
  9. NASACORT [Concomitant]
  10. NUTRAMATRIX/NUTRACEUTICALS [Concomitant]
  11. VITAMIN D [Concomitant]
  12. ALBUTEROL [Concomitant]
  13. VICKS DAYQUIL SINUS PRESSURE + PAIN RELIEF W/ IBUPROFEN [Concomitant]
  14. CHLORASEPTIC [Concomitant]
  15. IBUPROFEN [Concomitant]

REACTIONS (22)
  - ARTHROPOD BITE [None]
  - BURNING SENSATION [None]
  - CHEST DISCOMFORT [None]
  - DYSPNOEA [None]
  - FALL [None]
  - GAIT DISTURBANCE [None]
  - HOT FLUSH [None]
  - HYPERSENSITIVITY [None]
  - HYPOAESTHESIA [None]
  - INFLUENZA LIKE ILLNESS [None]
  - LIMB DISCOMFORT [None]
  - MULTIPLE SCLEROSIS RELAPSE [None]
  - MUSCLE SPASMS [None]
  - MUSCLE TIGHTNESS [None]
  - MYALGIA [None]
  - NAUSEA [None]
  - NIGHT SWEATS [None]
  - OEDEMA PERIPHERAL [None]
  - PARAESTHESIA [None]
  - PRURITUS [None]
  - URTICARIA [None]
  - VASCULAR RUPTURE [None]
